FAERS Safety Report 20171656 (Version 1)
Quarter: 2021Q4

REPORT INFORMATION
  Report Type: Report from Study
  Country: IT (occurrence: IT)
  Receive Date: 20211210
  Receipt Date: 20211210
  Transmission Date: 20220303
  Serious: Yes (Other)
  Sender: FDA-Public Use
  Company Number: None

PATIENT

DRUGS (2)
  1. VISIPAQUE [Suspect]
     Active Substance: IODIXANOL
     Indication: Computerised tomogram
     Dosage: 320 MG, SINGLE
     Route: 042
     Dates: start: 20210427, end: 20210427
  2. VISIPAQUE [Suspect]
     Active Substance: IODIXANOL
     Indication: Product used for unknown indication

REACTIONS (2)
  - Dysphagia [Recovering/Resolving]
  - Palatal oedema [Recovering/Resolving]

NARRATIVE: CASE EVENT DATE: 20210427
